FAERS Safety Report 20875394 (Version 1)
Quarter: 2022Q2

REPORT INFORMATION
  Report Type: Spontaneous
  Country: CN (occurrence: CN)
  Receive Date: 20220526
  Receipt Date: 20220526
  Transmission Date: 20220721
  Serious: Yes (Hospitalization)
  Sender: FDA-Public Use
  Company Number: CN-JNJFOC-20220548088

PATIENT
  Age: 54 Year
  Sex: Female
  Weight: 64 kg

DRUGS (1)
  1. SPORANOX [Suspect]
     Active Substance: ITRACONAZOLE
     Indication: Dermatophytosis of nail
     Route: 048
     Dates: start: 20220501, end: 20220508

REACTIONS (1)
  - Drug eruption [Recovering/Resolving]
